FAERS Safety Report 10199201 (Version 2)
Quarter: 2015Q1

REPORT INFORMATION
  Report Type: Spontaneous
  Country: US (occurrence: US)
  Receive Date: 20140527
  Receipt Date: 20150225
  Transmission Date: 20150720
  Serious: No
  Sender: FDA-Public Use
  Company Number: US-VIVUS-2014V1000116

PATIENT
  Age: 64 Year
  Sex: Male

DRUGS (4)
  1. STENDRA [Suspect]
     Active Substance: AVANAFIL
     Route: 048
     Dates: start: 201412
  2. PREVACID [Concomitant]
     Active Substance: LANSOPRAZOLE
  3. TWO UNSPECIFIED BLOOD PRESSURE MEDICATIONS [Concomitant]
     Indication: BLOOD PRESSURE
  4. STENDRA [Suspect]
     Active Substance: AVANAFIL
     Indication: ERECTILE DYSFUNCTION
     Route: 048
     Dates: start: 20140212

REACTIONS (2)
  - Drug effect delayed [Unknown]
  - Drug ineffective [Unknown]

NARRATIVE: CASE EVENT DATE: 20140212
